FAERS Safety Report 18619947 (Version 2)
Quarter: 2021Q1

REPORT INFORMATION
  Report Type: Spontaneous
  Country: US (occurrence: US)
  Receive Date: 20201215
  Receipt Date: 20210216
  Transmission Date: 20210419
  Serious: Yes (Other)
  Sender: FDA-Public Use
  Company Number: US-PFIZER INC-2020492686

PATIENT
  Age: 49 Year
  Sex: Female

DRUGS (1)
  1. IBRANCE [Suspect]
     Active Substance: PALBOCICLIB
     Indication: BREAST CANCER FEMALE
     Dosage: 125 MG, CYCLIC [125 MG PO (ORALLY) QD (ONCE A DAY) FOR 21 DAYS]
     Route: 048
     Dates: start: 20191127

REACTIONS (2)
  - COVID-19 [Unknown]
  - Pneumonia [Unknown]
